FAERS Safety Report 4404787-3 (Version None)
Quarter: 2004Q3

REPORT INFORMATION
  Report Type: 
  Country: None (occurrence: None)
  Receive Date: 20040722
  Receipt Date: 20040716
  Transmission Date: 20050211
  Serious: Yes (Hospitalization)
  Sender: FDA-Public Use
  Company Number: PHEH2004US07694

PATIENT
  Age: 28 Year
  Sex: Female

DRUGS (1)
  1. ZELNORM [Suspect]
     Dosage: 6 MG, ONCE/SINGLE
     Route: 048
     Dates: start: 20040708, end: 20040708

REACTIONS (3)
  - ABDOMINAL PAIN LOWER [None]
  - COLITIS ISCHAEMIC [None]
  - DIARRHOEA HAEMORRHAGIC [None]
